FAERS Safety Report 17205689 (Version 3)
Quarter: 2020Q1

REPORT INFORMATION
  Report Type: Spontaneous
  Country: JP (occurrence: JP)
  Receive Date: 20191227
  Receipt Date: 20200305
  Transmission Date: 20200409
  Serious: Yes (Hospitalization, Other)
  Sender: FDA-Public Use
  Company Number: JP-009507513-1912JPN003540J

PATIENT
  Age: 57 Year
  Sex: Male
  Weight: 55 kg

DRUGS (15)
  1. KEYTRUDA [Suspect]
     Active Substance: PEMBROLIZUMAB
     Indication: NON-SMALL CELL LUNG CANCER
     Dosage: 200 MILLIGRAM, Q3W
     Route: 041
     Dates: start: 20190930, end: 20191203
  2. PEMETREXED DISODIUM [Concomitant]
     Active Substance: PEMETREXED DISODIUM
     Indication: NON-SMALL CELL LUNG CANCER
     Dosage: 840 MILLIGRAM, Q3W
     Route: 041
     Dates: start: 20190930, end: 20191203
  3. CARBAZOCHROME SULFONATE NA [Concomitant]
     Indication: HAEMATOCHEZIA
     Dosage: 30 MILLIGRAM, PRN
     Route: 048
     Dates: start: 20191009
  4. CODEINE PHOSPHATE HYDRATE [Concomitant]
     Active Substance: CODEINE PHOSPHATE
     Indication: ANTITUSSIVE THERAPY
     Dosage: 20 MILLIGRAM, PRN
     Route: 048
     Dates: start: 20190907
  5. LOXOPROFEN [Concomitant]
     Active Substance: LOXOPROFEN
     Dosage: 60 MILLIGRAM, PRN
     Route: 048
     Dates: start: 20191007
  6. PEMETREXED DISODIUM [Concomitant]
     Active Substance: PEMETREXED DISODIUM
     Dosage: 830 MILLIGRAM, Q3W
     Route: 041
     Dates: start: 20200107
  7. CALONAL [Concomitant]
     Active Substance: ACETAMINOPHEN
     Dosage: 400 MILLIGRAM, PRN
     Route: 048
     Dates: start: 20190920
  8. FOLIAMIN [Concomitant]
     Active Substance: FOLIC ACID
     Indication: ADVERSE DRUG REACTION
     Dosage: 0.5 MILLIGRAM, QD
     Route: 048
     Dates: start: 20190927
  9. ASTOMIN [Concomitant]
     Active Substance: DIMEMORFAN
     Indication: ANTITUSSIVE THERAPY
     Dosage: 20 MILLIGRAM, TID
     Route: 048
     Dates: start: 20190907
  10. TRANEXAMIC ACID. [Concomitant]
     Active Substance: TRANEXAMIC ACID
     Indication: HAEMATOCHEZIA
     Dosage: 250 MILLIGRAM, PRN
     Route: 048
     Dates: start: 20191009
  11. CARBOPLATIN. [Suspect]
     Active Substance: CARBOPLATIN
     Indication: NON-SMALL CELL LUNG CANCER
     Dosage: 580 MILLIGRAM, Q3W
     Route: 041
     Dates: start: 20190930, end: 20191203
  12. REBAMIPIDE [Concomitant]
     Active Substance: REBAMIPIDE
     Indication: ABDOMINAL DISCOMFORT
     Dosage: 100 MILLIGRAM, TID
     Route: 048
     Dates: start: 20190926
  13. MAGMITT [Concomitant]
     Active Substance: MAGNESIUM OXIDE
     Indication: CONSTIPATION
     Dosage: 330 MILLIGRAM, TID
     Route: 048
     Dates: start: 20191217
  14. DOMPERIDONE [Concomitant]
     Active Substance: DOMPERIDONE
     Indication: NAUSEA
     Dosage: 10 MILLIGRAM, TID
     Route: 048
     Dates: start: 20191003
  15. BETAHISTINE MESYLATE [Concomitant]
     Active Substance: BETAHISTINE MESILATE
     Indication: DIZZINESS
     Dosage: 12 MILLIGRAM, PRN
     Route: 048
     Dates: start: 20191112

REACTIONS (2)
  - Atrioventricular block complete [Recovering/Resolving]
  - Immune-mediated myocarditis [Recovering/Resolving]

NARRATIVE: CASE EVENT DATE: 20191219
